FAERS Safety Report 23677255 (Version 1)
Quarter: 2024Q1

REPORT INFORMATION
  Report Type: Spontaneous
  Country: CA (occurrence: CA)
  Receive Date: 20240327
  Receipt Date: 20240327
  Transmission Date: 20240410
  Serious: Yes (Other)
  Sender: FDA-Public Use
  Company Number: CA-SANDOZ-SDZ2024CA030691

PATIENT
  Age: 13 Year
  Sex: Female

DRUGS (1)
  1. DEFERASIROX [Suspect]
     Active Substance: DEFERASIROX
     Indication: Iron overload
     Dosage: 900 MG, QD (1 EVERY 1 DAYS)
     Route: 048

REACTIONS (3)
  - Cardiac dysfunction [Unknown]
  - Iron overload [Unknown]
  - Pancreatic disorder [Unknown]
